FAERS Safety Report 10661471 (Version 2)
Quarter: 2014Q4

REPORT INFORMATION
  Report Type: Spontaneous
  Country: FR (occurrence: FR)
  Receive Date: 20141218
  Receipt Date: 20141223
  Transmission Date: 20150529
  Serious: Yes (Congenital Anomaly)
  Sender: FDA-Public Use
  Company Number: FR-TEVA-528541ISR

PATIENT
  Age: 12 Week

DRUGS (2)
  1. COPAXONE [Suspect]
     Active Substance: GLATIRAMER ACETATE
     Indication: MULTIPLE SCLEROSIS
     Dosage: 20 MG
     Route: 064
     Dates: start: 20131118
  2. TYSABRI [Suspect]
     Active Substance: NATALIZUMAB
     Indication: MULTIPLE SCLEROSIS
     Route: 064
     Dates: start: 20121001, end: 20131021

REACTIONS (2)
  - Foetal exposure during pregnancy [Unknown]
  - Trisomy 21 [Recovered/Resolved with Sequelae]

NARRATIVE: CASE EVENT DATE: 20140526
